FAERS Safety Report 20101677 (Version 1)
Quarter: 2021Q4

REPORT INFORMATION
  Report Type: Spontaneous
  Country: CN (occurrence: CN)
  Receive Date: 20211123
  Receipt Date: 20211123
  Transmission Date: 20220304
  Serious: Yes (Other)
  Sender: FDA-Public Use
  Company Number: CN-ABBVIE-21K-035-4171677-00

PATIENT
  Age: 68 Year
  Sex: Male
  Weight: 75 kg

DRUGS (2)
  1. VALPROATE SODIUM [Suspect]
     Active Substance: VALPROATE SODIUM
     Indication: Transient ischaemic attack
     Route: 048
     Dates: start: 20211101, end: 20211105
  2. GABAPENTIN [Suspect]
     Active Substance: GABAPENTIN
     Indication: Transient ischaemic attack
     Route: 048
     Dates: start: 20211102, end: 20211105

REACTIONS (1)
  - Depressed level of consciousness [Recovering/Resolving]
